FAERS Safety Report 7334733-4 (Version None)
Quarter: 2011Q1

REPORT INFORMATION
  Report Type: 
  Country: None (occurrence: None)
  Receive Date: 20110307
  Receipt Date: 20110222
  Transmission Date: 20110831
  Serious: Yes (Other)
  Sender: FDA-Public Use
  Company Number: PHHY2010JP12914

PATIENT
  Age: 56 Year
  Sex: Male

DRUGS (2)
  1. NEORAL [Suspect]
     Indication: RHEUMATOID ARTHRITIS
     Dosage: 50 MG, UNK
     Route: 048
     Dates: start: 20090401
  2. NEORAL [Suspect]
     Indication: SYSTEMIC LUPUS ERYTHEMATOSUS

REACTIONS (9)
  - THROMBOCYTOPENIA [None]
  - KNEE DEFORMITY [None]
  - INTERSTITIAL LUNG DISEASE [None]
  - LEUKOPENIA [None]
  - ANAEMIA [None]
  - ZYGOMYCOSIS [None]
  - RHEUMATOID ARTHRITIS [None]
  - PYREXIA [None]
  - ARTHRALGIA [None]
